FAERS Safety Report 7952705-3 (Version None)
Quarter: 2011Q4

REPORT INFORMATION
  Report Type: 
  Country: None (occurrence: None)
  Receive Date: 20111201
  Receipt Date: 20111122
  Transmission Date: 20120403
  Serious: No
  Sender: FDA-Public Use
  Company Number: US-B.I. PHARMACEUTICALS,INC./RIDGEFIELD-2011-BP-23889BP

PATIENT
  Sex: Male

DRUGS (5)
  1. NIACIN [Concomitant]
     Indication: BLOOD CHOLESTEROL INCREASED
     Dosage: 500 MG
     Route: 048
     Dates: start: 20100101
  2. LOVAZA [Concomitant]
     Indication: ROUTINE HEALTH MAINTENANCE
     Route: 048
  3. LANSOPRAZOLE [Concomitant]
     Indication: GASTROOESOPHAGEAL REFLUX DISEASE
     Dosage: 30 MG
     Route: 048
     Dates: start: 20100101
  4. CENTRUM MULTIVITAMIN [Concomitant]
     Indication: ROUTINE HEALTH MAINTENANCE
     Route: 048
  5. PRADAXA [Suspect]
     Indication: ATRIAL FLUTTER
     Dosage: 300 MG
     Route: 048
     Dates: start: 20110930, end: 20111007

REACTIONS (3)
  - HEADACHE [None]
  - POOR QUALITY SLEEP [None]
  - PAIN IN EXTREMITY [None]
